FAERS Safety Report 19765979 (Version 2)
Quarter: 2022Q1

REPORT INFORMATION
  Report Type: Spontaneous
  Country: AU (occurrence: AU)
  Receive Date: 20210831
  Receipt Date: 20220212
  Transmission Date: 20220423
  Serious: Yes (Other)
  Sender: FDA-Public Use
  Company Number: AU-AMGEN-AUSSP2021117254

PATIENT
  Age: 75 Year
  Sex: Female

DRUGS (11)
  1. PROLIA [Suspect]
     Active Substance: DENOSUMAB
     Indication: Bone disorder
     Dosage: 60 MILLIGRAM PER MILLILITRE, Q6MO
     Route: 058
     Dates: start: 202101
  2. EPIPEN [Concomitant]
     Active Substance: EPINEPHRINE
     Dosage: 1 INJE P.R.N.
  3. FLUTICASONE PROPIONATE\FORMOTEROL FUMARATE [Concomitant]
     Active Substance: FLUTICASONE PROPIONATE\FORMOTEROL FUMARATE
     Dosage: I PUFF, BID
  4. MOVICOL [Concomitant]
     Active Substance: POLYETHYLENE GLYCOL 3350\POTASSIUM CHLORIDE\SODIUM BICARBONATE\SODIUM CHLORIDE
     Dosage: I SACHET IN THE EVENING
  5. HYDROXOCOBALAMIN [Concomitant]
     Active Substance: HYDROXOCOBALAMIN
     Dosage: I INJECTION EVERY 3/12
  6. ONDANSETRON [Concomitant]
     Active Substance: ONDANSETRON
     Dosage: 1 DOSAGE FORM P. R .N.
     Route: 048
  7. TEMAZEPAM [Concomitant]
     Active Substance: TEMAZEPAM
     Dosage: 1 DOSAGE FORM IN THE EVENING
  8. ALBUTEROL SULFATE [Concomitant]
     Active Substance: ALBUTEROL SULFATE
     Dosage: 2 PUFFS EVERY 4 HOURS P.R.N
  9. COVID-19 VACCINE [Concomitant]
     Dosage: UNK
  10. COVID-19 VACCINE [Concomitant]
     Dosage: UNK
  11. FLUAD QUAD [Concomitant]
     Dosage: UNK

REACTIONS (3)
  - Bronchiectasis [Unknown]
  - Off label use [Unknown]
  - Nausea [Unknown]

NARRATIVE: CASE EVENT DATE: 20210101
